FAERS Safety Report 15312297 (Version 1)
Quarter: 2018Q3

REPORT INFORMATION
  Report Type: Spontaneous
  Country: US (occurrence: US)
  Receive Date: 20180823
  Receipt Date: 20180823
  Transmission Date: 20181010
  Serious: No
  Sender: FDA-Public Use
  Company Number: US-STALLERGENES SAS-2054158

PATIENT
  Age: 58 Year
  Sex: Male

DRUGS (2)
  1. ORALAIR [Suspect]
     Active Substance: ANTHOXANTHUM ODORATUM POLLEN\DACTYLIS GLOMERATA POLLEN\LOLIUM PERENNE POLLEN\PHLEUM PRATENSE POLLEN\POA PRATENSIS POLLEN
     Indication: HYPERSENSITIVITY
     Route: 060
     Dates: start: 20180401, end: 20180430
  2. LORATADINE. [Concomitant]
     Active Substance: LORATADINE

REACTIONS (2)
  - Lip oedema [Recovered/Resolved]
  - Tongue eruption [Recovered/Resolved]

NARRATIVE: CASE EVENT DATE: 20180401
